FAERS Safety Report 7125378-X (Version None)
Quarter: 2010Q4

REPORT INFORMATION
  Report Type: 
  Country: None (occurrence: None)
  Receive Date: 20101129
  Receipt Date: 20101117
  Transmission Date: 20110411
  Serious: Yes (Other)
  Sender: FDA-Public Use
  Company Number: US-JNJFOC-20101106966

PATIENT
  Age: 74 Year
  Sex: Female
  Weight: 62.14 kg

DRUGS (6)
  1. TYLENOL (CAPLET) [Suspect]
     Route: 048
  2. TYLENOL (CAPLET) [Suspect]
     Indication: BACK PAIN
     Dosage: 325-650 MG TABLET, ONCE DAILY AT HOUR OF SLEEP INITIATED A COUPLE OF YEARS AGO.
     Route: 048
  3. METFORMIN [Concomitant]
     Indication: DIABETES MELLITUS
     Dosage: 1 ^PILL^ TWICE DAILY
     Route: 065
  4. NORVASC [Concomitant]
     Indication: HYPERTENSION
     Route: 065
  5. HYZAAR [Concomitant]
     Indication: HYPERTENSION
     Dosage: 1 ^PILL^, TWICE DAILY
     Route: 065
  6. HYDRALAZINE [Concomitant]
     Indication: HYPERTENSION
     Dosage: 1 ^PILL^ TWICE DAILY
     Route: 065

REACTIONS (5)
  - HALLUCINATION [None]
  - NAUSEA [None]
  - PRODUCT ODOUR ABNORMAL [None]
  - PRURITUS [None]
  - VISION BLURRED [None]
